FAERS Safety Report 6792716-7 (Version None)
Quarter: 2010Q2

REPORT INFORMATION
  Report Type: 
  Country: None (occurrence: None)
  Receive Date: 20100624
  Receipt Date: 20091013
  Transmission Date: 20101027
  Serious: Yes (Other)
  Sender: FDA-Public Use
  Company Number: US-PFIZER INC-2008068083

PATIENT
  Sex: Female

DRUGS (2)
  1. DEPO-PROVERA [Suspect]
     Indication: CONTRACEPTION
     Route: 030
     Dates: start: 19991001, end: 20060301
  2. NOVOLOG [Concomitant]

REACTIONS (2)
  - OSTEOPENIA [None]
  - OSTEOPOROTIC FRACTURE [None]
